FAERS Safety Report 7618567-9 (Version None)
Quarter: 2011Q3

REPORT INFORMATION
  Report Type: 
  Country: None (occurrence: None)
  Receive Date: 20110718
  Receipt Date: 20110712
  Transmission Date: 20111222
  Serious: Yes (Disabling, Other)
  Sender: FDA-Public Use
  Company Number: GB-PFIZER INC-2011157988

PATIENT
  Age: 44 Year
  Sex: Female
  Weight: 65 kg

DRUGS (6)
  1. CALCIUM [Concomitant]
  2. ZOPICLONE [Concomitant]
     Indication: INSOMNIA
     Dosage: 7.5 MG, UNK
     Route: 048
     Dates: start: 20100901, end: 20101101
  3. VITAMIN B NOS [Concomitant]
  4. GLUCOSAMINE [Concomitant]
  5. MINOXIDIL [Suspect]
     Indication: ALOPECIA
     Dosage: UNK
     Route: 061
     Dates: start: 20080601, end: 20101101
  6. CHONDROITIN [Concomitant]

REACTIONS (10)
  - OEDEMA PERIPHERAL [None]
  - NAUSEA [None]
  - BONE PAIN [None]
  - INSOMNIA [None]
  - DEPRESSED MOOD [None]
  - TACHYCARDIA [None]
  - ACROCHORDON [None]
  - ANXIETY [None]
  - DEPRESSION [None]
  - ARTHROPATHY [None]
